FAERS Safety Report 5025022-1 (Version None)
Quarter: 2006Q2

REPORT INFORMATION
  Report Type: 
  Country: None (occurrence: None)
  Receive Date: 20060607
  Receipt Date: 20060525
  Transmission Date: 20061013
  Serious: Yes (Other)
  Sender: FDA-Public Use
  Company Number: 225701

PATIENT
  Age: 48 Year
  Sex: Female
  Weight: 60.8 kg

DRUGS (4)
  1. AVASTIN [Suspect]
     Indication: COLON CANCER
     Dosage: 5 MG/KG, Q2W, INTRAVENOUS
     Route: 042
     Dates: start: 20051116
  2. FLUOROURACIL [Concomitant]
  3. ELOXATIN [Concomitant]
  4. LEUCOVORIN CALCIUM [Concomitant]

REACTIONS (1)
  - SKIN ATROPHY [None]
